FAERS Safety Report 10232377 (Version 1)
Quarter: 2014Q2

REPORT INFORMATION
  Report Type: Spontaneous
  Country: US (occurrence: None)
  Receive Date: 20140610
  Receipt Date: 20140610
  Transmission Date: 20141212
  Serious: Yes (Other)
  Sender: FDA-Public Use
  Company Number: None

PATIENT
  Age: 64 Year
  Sex: Male
  Weight: 81.65 kg

DRUGS (5)
  1. AUGMENTIN [Suspect]
     Indication: ANIMAL BITE
     Route: 048
     Dates: start: 20140518, end: 20140523
  2. WARFARIN [Concomitant]
  3. PRAVASTATIN SODIUM [Concomitant]
  4. VITAMIN C [Concomitant]
  5. CENTRUM SILVER [Concomitant]

REACTIONS (3)
  - Diarrhoea [None]
  - Dehydration [None]
  - Intestinal haemorrhage [None]
